FAERS Safety Report 6237944-4 (Version None)
Quarter: 2009Q2

REPORT INFORMATION
  Report Type: 
  Country: None (occurrence: None)
  Receive Date: 20090617
  Receipt Date: 20090617
  Transmission Date: 20091009
  Serious: Yes (Hospitalization)
  Sender: FDA-Public Use
  Company Number: None

PATIENT
  Age: 78 Year
  Sex: Male

DRUGS (2)
  1. WARFARIN [Suspect]
     Indication: ATRIAL FIBRILLATION
     Dosage: 5 MG EVERY DAY PO
     Route: 048
     Dates: start: 20090502, end: 20090512
  2. ENOXAPARIN SODIUM [Suspect]
     Indication: ATRIAL FIBRILLATION
     Dosage: 120 MG BID PO
     Route: 048
     Dates: start: 20090503, end: 20090511

REACTIONS (2)
  - HAEMATOMA [None]
  - HAEMORRHAGE [None]
